FAERS Safety Report 9447821 (Version 1)
Quarter: 2013Q3

REPORT INFORMATION
  Report Type: Spontaneous
  Country: US (occurrence: US)
  Receive Date: 20130808
  Receipt Date: 20130808
  Transmission Date: 20140515
  Serious: No
  Sender: FDA-Public Use
  Company Number: US-PFIZER INC-2013229536

PATIENT
  Age: 73 Year
  Sex: Male

DRUGS (9)
  1. XELJANZ [Suspect]
     Indication: RHEUMATOID ARTHRITIS
     Dosage: 5 MG, 2X/DAY
     Route: 048
     Dates: start: 20130607, end: 201306
  2. XELJANZ [Suspect]
     Dosage: 5 MG, 2X/DAY
     Route: 048
     Dates: start: 201307
  3. HUMALOG [Concomitant]
     Dosage: UNK
  4. LEVEMIR [Concomitant]
     Dosage: UNK
  5. CRESTOR [Concomitant]
     Dosage: 10 MG, UNK
  6. ALLOPURINOL [Concomitant]
     Dosage: 100 MG, UNK
  7. ASPIRIN [Concomitant]
     Dosage: 81 MG, UNK
  8. PROTONIX [Concomitant]
     Dosage: 40 MG, UNK
  9. LEFLUNOMIDE [Concomitant]
     Dosage: 10 MG, UNK

REACTIONS (2)
  - Drug ineffective [Unknown]
  - Skin infection [Not Recovered/Not Resolved]
